FAERS Safety Report 17802170 (Version 1)
Quarter: 2020Q2

REPORT INFORMATION
  Report Type: Spontaneous
  Country: US (occurrence: US)
  Receive Date: 20200518
  Receipt Date: 20200518
  Transmission Date: 20200714
  Serious: No
  Sender: FDA-Public Use
  Company Number: None

PATIENT
  Age: 67 Year
  Sex: Female

DRUGS (1)
  1. XIFAXAN [Suspect]
     Active Substance: RIFAXIMIN
     Indication: HEPATIC CIRRHOSIS
     Route: 048
     Dates: start: 20200226

REACTIONS (8)
  - Erythema [None]
  - Eye swelling [None]
  - Swelling face [None]
  - Dizziness [None]
  - Eye pruritus [None]
  - Chest discomfort [None]
  - Flushing [None]
  - Ocular hyperaemia [None]

NARRATIVE: CASE EVENT DATE: 20200226
